FAERS Safety Report 7316263-9 (Version None)
Quarter: 2011Q1

REPORT INFORMATION
  Report Type: 
  Country: None (occurrence: None)
  Receive Date: 20110225
  Receipt Date: 20110225
  Transmission Date: 20110831
  Serious: Yes (Other)
  Sender: FDA-Public Use
  Company Number: US-PFIZER INC-2010138367

PATIENT
  Sex: Female
  Weight: 90.7 kg

DRUGS (20)
  1. METFORMIN [Concomitant]
     Indication: METABOLIC SYNDROME
     Dosage: UNK
  2. GEODON [Concomitant]
     Dosage: UNK
  3. CALCIUM CARBONATE [Concomitant]
     Dosage: UNK
  4. COGENTIN [Concomitant]
     Dosage: UNK
  5. OMEPRAZOLE [Concomitant]
     Dosage: UNK
  6. DEPO-PROVERA [Concomitant]
     Dosage: UNK
  7. ASCORBIC ACID [Concomitant]
     Dosage: UNK
  8. COMPAZINE [Concomitant]
     Dosage: UNK
  9. VITAMIN D [Concomitant]
     Dosage: UNK
  10. DOXYCYCLINE [Concomitant]
     Indication: CONSTIPATION
     Dosage: UNK
  11. SENNOSIDES [Concomitant]
     Indication: CONSTIPATION
     Dosage: UNK
  12. FLAXSEED OIL [Concomitant]
     Dosage: UNK
  13. LYRICA [Suspect]
     Indication: FIBROMYALGIA
     Dosage: 225 MG, 2X/DAY
     Route: 048
     Dates: start: 20080523, end: 20090423
  14. KLONOPIN [Concomitant]
     Dosage: UNK
  15. FISH OIL [Concomitant]
     Dosage: UNK
  16. PRAVASTATIN [Concomitant]
     Dosage: UNK
  17. ACETYLSALICYLIC ACID [Concomitant]
     Dosage: UNK
  18. TEMAZEPAM [Concomitant]
     Indication: SLEEP DISORDER
     Dosage: UNK
  19. LEXAPRO [Concomitant]
     Dosage: UNK
  20. FENOFIBRATE [Concomitant]
     Dosage: UNK

REACTIONS (5)
  - WHITE BLOOD CELLS URINE POSITIVE [None]
  - BLOOD TRIGLYCERIDES INCREASED [None]
  - ENURESIS [None]
  - BLOOD CHOLESTEROL INCREASED [None]
  - BLOOD URINE PRESENT [None]
